FAERS Safety Report 6577612-2 (Version None)
Quarter: 2010Q1

REPORT INFORMATION
  Report Type: 
  Country: None (occurrence: None)
  Receive Date: 20100211
  Receipt Date: 20100201
  Transmission Date: 20100710
  Serious: Yes (Other)
  Sender: FDA-Public Use
  Company Number: PHEH2008US04335

PATIENT
  Sex: Female

DRUGS (4)
  1. AREDIA [Suspect]
  2. FOSAMAX [Suspect]
  3. AMOXICILLIN [Concomitant]
     Dosage: 500 MG
  4. RADIATION THERAPY [Concomitant]

REACTIONS (8)
  - ANHEDONIA [None]
  - ANXIETY [None]
  - DENTURE WEARER [None]
  - DISABILITY [None]
  - INJURY [None]
  - OSTEONECROSIS [None]
  - PAIN [None]
  - TOOTH EXTRACTION [None]
